FAERS Safety Report 7315055-4 (Version None)
Quarter: 2011Q1

REPORT INFORMATION
  Report Type: 
  Country: None (occurrence: None)
  Receive Date: 20110225
  Receipt Date: 20100416
  Transmission Date: 20110831
  Serious: No
  Sender: FDA-Public Use
  Company Number: US-MYLANLABS-2010S1004962

PATIENT
  Age: 25 Year
  Sex: Female

DRUGS (2)
  1. AMNESTEEM [Suspect]
     Indication: ACNE
     Route: 048
     Dates: start: 20100101, end: 20100301
  2. ORTHO TRI-CYCLEN LO [Concomitant]

REACTIONS (3)
  - VISION BLURRED [None]
  - MYALGIA [None]
  - HEADACHE [None]
